FAERS Safety Report 17377130 (Version 1)
Quarter: 2020Q1

REPORT INFORMATION
  Report Type: Spontaneous
  Country: US (occurrence: US)
  Receive Date: 20200206
  Receipt Date: 20200206
  Transmission Date: 20200409
  Serious: No
  Sender: FDA-Public Use
  Company Number: US-PFIZER INC-2017169693

PATIENT
  Age: 65 Year
  Sex: Female
  Weight: 107 kg

DRUGS (17)
  1. MURO 128 [Concomitant]
     Active Substance: SODIUM CHLORIDE
     Dosage: 2 GTT, AS NEEDED (1 DROP INTO AFFECTED EYE TWICE A DAY, AS NEEDED)
     Route: 047
  2. SODIUM CHLORIDE. [Concomitant]
     Active Substance: SODIUM CHLORIDE
     Indication: WOUND
     Dosage: 1 DF, AS NEEDED (DAILY, AS NEEDED)
     Route: 042
  3. HYDROCORTISONE. [Concomitant]
     Active Substance: HYDROCORTISONE
     Dosage: 1 DF, AS NEEDED (EXTERNALLY ONCE A DAY, AS NEEDED)
     Route: 061
  4. PROPRANOLOL [Concomitant]
     Active Substance: PROPRANOLOL HYDROCHLORIDE
     Indication: BLOOD PRESSURE DECREASED
  5. PROPRANOLOL HCL [Concomitant]
     Active Substance: PROPRANOLOL HYDROCHLORIDE
     Indication: MIGRAINE
     Dosage: 60 MG, 1X/DAY
     Route: 048
  6. DICYCLOMINE HCL [Concomitant]
     Active Substance: DICYCLOMINE HYDROCHLORIDE
     Dosage: 20 MG, 2X/DAY(90 DAYS ,180 ,REFILLS: 3)
     Route: 048
  7. COD LIVER OIL [Concomitant]
     Active Substance: COD LIVER OIL
     Dosage: UNK
     Route: 048
  8. FOLIC ACID. [Concomitant]
     Active Substance: FOLIC ACID
     Dosage: 800 UG, 1X/DAY
     Route: 048
  9. ASPIRIN. [Concomitant]
     Active Substance: ASPIRIN
     Dosage: 81 MG, ALTERNATE DAY
     Route: 048
  10. LOTRISONE [Concomitant]
     Active Substance: BETAMETHASONE DIPROPIONATE\CLOTRIMAZOLE
     Dosage: 1 DF, 2X/DAY (0.05-1 %, EXTERNALLY)
     Route: 061
  11. RELPAX [Suspect]
     Active Substance: ELETRIPTAN HYDROBROMIDE
     Indication: MIGRAINE
     Dosage: 40 MG, AS NEEDED (ONCE DAILY, AS NEEDED)
     Route: 048
  12. ERYTHROMYCIN. [Concomitant]
     Active Substance: ERYTHROMYCIN
     Dosage: 5 MG/G, 1X/DAY (AT NIGHT)
     Route: 047
  13. OMEPRAZOLE. [Concomitant]
     Active Substance: OMEPRAZOLE
     Dosage: 20 MG, 2X/DAY
     Route: 048
  14. TEMAZEPAM. [Concomitant]
     Active Substance: TEMAZEPAM
     Dosage: 15 MG, AS NEEDED (ONCE DAILY AT BEDTIME, AS NEEDED)
     Route: 048
  15. PROPRANOLOL [Concomitant]
     Active Substance: PROPRANOLOL HYDROCHLORIDE
     Indication: MIGRAINE
     Dosage: 120 MG, 1X/DAY
     Route: 048
  16. RESTASIS [Concomitant]
     Active Substance: CYCLOSPORINE
     Dosage: 2 GTT, AS NEEDED (1 INTO AFFECTED EYE TWICE DAILY, AS NEEDED)
     Route: 047
  17. STOOL SOFTENER (DOCUSATE) [Concomitant]
     Active Substance: DOCUSATE
     Dosage: 100 MG, AS NEEDED (ONCE DAILY, AS NEEDED)
     Route: 048

REACTIONS (3)
  - Product dispensing error [Unknown]
  - Product packaging issue [Unknown]
  - Recalled product administered [Unknown]
